FAERS Safety Report 8950913 (Version 2)
Quarter: 2013Q1

REPORT INFORMATION
  Report Type: Spontaneous
  Country: IT (occurrence: IT)
  Receive Date: 20121207
  Receipt Date: 20130103
  Transmission Date: 20140127
  Serious: Yes (Hospitalization)
  Sender: FDA-Public Use
  Company Number: IT-SANOFI-AVENTIS-2012SA087795

PATIENT
  Age: 79 Year
  Sex: Male

DRUGS (7)
  1. ALDACTONE [Suspect]
     Indication: HYPERTENSION
     Route: 048
     Dates: start: 20110101, end: 20121002
  2. BISOPROLOL HEMIFUMARATE [Suspect]
     Indication: HYPERTENSION
     Route: 048
     Dates: start: 20110101, end: 20121002
  3. FUROSEMIDE [Suspect]
     Indication: HYPERTENSION
     Route: 048
     Dates: start: 20110101, end: 20121002
  4. KCL [Suspect]
     Indication: HYPOKALAEMIA
     Route: 048
     Dates: start: 20110101, end: 20121002
  5. CARDIOASPIRIN [Concomitant]
     Indication: MYOCARDIAL ISCHAEMIA
  6. PANTORC [Concomitant]
  7. WARFARIN [Concomitant]
     Indication: ATRIAL FIBRILLATION

REACTIONS (2)
  - Renal failure acute [Recovering/Resolving]
  - Hyperkalaemia [Recovering/Resolving]
